FAERS Safety Report 5095158-8 (Version None)
Quarter: 2006Q3

REPORT INFORMATION
  Report Type: 
  Country: None (occurrence: None)
  Receive Date: 20060901
  Receipt Date: 20060821
  Transmission Date: 20061208
  Serious: Yes (Other)
  Sender: FDA-Public Use
  Company Number: 2006GB01458

PATIENT
  Sex: Female
  Weight: 70 kg

DRUGS (2)
  1. ATENOLOL [Suspect]
     Indication: ESSENTIAL HYPERTENSION
     Route: 048
     Dates: start: 20060601, end: 20060704
  2. TEGRETOL [Concomitant]
     Dates: end: 20060517

REACTIONS (1)
  - BLOOD PRESSURE FLUCTUATION [None]
